FAERS Safety Report 8343382-0 (Version None)
Quarter: 2012Q2

REPORT INFORMATION
  Report Type: 
  Country: None (occurrence: None)
  Receive Date: 20120508
  Receipt Date: 20120426
  Transmission Date: 20120825
  Serious: Yes (Hospitalization, Other)
  Sender: FDA-Public Use
  Company Number: FR-BRISTOL-MYERS SQUIBB COMPANY-16456014

PATIENT
  Age: 65 Year
  Sex: Female
  Weight: 60 kg

DRUGS (2)
  1. PREVISCAN [Suspect]
  2. COUMADIN [Suspect]
     Dosage: COUMADIN TABS 5 MG SCORED TABS
     Route: 048
     Dates: start: 20111128, end: 20120301

REACTIONS (4)
  - CARDIAC FAILURE [None]
  - VASCULAR PURPURA [None]
  - INFLUENZA [None]
  - INTERNATIONAL NORMALISED RATIO INCREASED [None]
